FAERS Safety Report 4949536-5 (Version None)
Quarter: 2006Q1

REPORT INFORMATION
  Report Type: 
  Country: None (occurrence: None)
  Receive Date: 20060316
  Receipt Date: 20060303
  Transmission Date: 20060701
  Serious: Yes (Hospitalization)
  Sender: FDA-Public Use
  Company Number: 2006RL000069

PATIENT
  Age: 44 Year
  Sex: Male
  Weight: 73.9363 kg

DRUGS (7)
  1. RYTHMOL [Suspect]
     Indication: ATRIAL FIBRILLATION
     Dosage: 225 MG; BID ; PO  : 225 MG;TID;PO
     Route: 048
     Dates: start: 20051104, end: 20051118
  2. RYTHMOL [Suspect]
     Indication: ATRIAL FIBRILLATION
     Dosage: 225 MG; BID ; PO  : 225 MG;TID;PO
     Route: 048
     Dates: start: 20051118
  3. ACETYLSALICYLIC ACID SRT [Concomitant]
  4. BENICAR HCT [Concomitant]
  5. MULTIVITAMIN [Concomitant]
  6. VITAMIN E [Concomitant]
  7. ESOMEPRAZOLE [Concomitant]

REACTIONS (3)
  - ATRIAL FIBRILLATION [None]
  - DISEASE RECURRENCE [None]
  - DRUG EFFECT DECREASED [None]
